FAERS Safety Report 5071839-7 (Version None)
Quarter: 2006Q3

REPORT INFORMATION
  Report Type: 
  Country: None (occurrence: None)
  Receive Date: 20060801
  Receipt Date: 20060724
  Transmission Date: 20061208
  Serious: Yes (Death)
  Sender: FDA-Public Use
  Company Number: US200604002320

PATIENT
  Age: 54 Year
  Sex: Female
  Weight: 129.3 kg

DRUGS (8)
  1. ZYPREXA [Suspect]
     Dosage: 5 MG; 10 MG; 10 MG; 15 MG
     Dates: start: 20011201, end: 20030601
  2. ZYPREXA [Suspect]
     Dosage: 5 MG; 10 MG; 10 MG; 15 MG
     Dates: start: 20030701, end: 20040201
  3. ZYPREXA [Suspect]
     Dosage: 5 MG; 10 MG; 10 MG; 15 MG
     Dates: start: 19970201
  4. SEROQUEL [Concomitant]
  5. DEPAKOTE [Concomitant]
  6. CITALOPRAM HYDROBROMIDE [Concomitant]
  7. ZOLOFT [Concomitant]
  8. ESTROGEN W/MEDROXYPROGESTERON (ESTRONE, MEDROXYPROGESTERONE) [Concomitant]

REACTIONS (1)
  - DIABETES MELLITUS [None]
